FAERS Safety Report 11105620 (Version 1)
Quarter: 2015Q2

REPORT INFORMATION
  Report Type: Spontaneous
  Country: US (occurrence: None)
  Receive Date: 20150508
  Receipt Date: 20150508
  Transmission Date: 20150821
  Serious: Yes (Disabling)
  Sender: FDA-Public Use
  Company Number: None

PATIENT
  Age: 52 Year
  Sex: Female
  Weight: 90.72 kg

DRUGS (2)
  1. LEVAQUIN [Suspect]
     Active Substance: LEVOFLOXACIN
     Indication: BRONCHITIS
     Dosage: 1 PILL, ONCE DAILY, TAKEN BY MOUTH
     Route: 048
     Dates: start: 20121215, end: 20130104
  2. FISH OIL [Concomitant]
     Active Substance: FISH OIL

REACTIONS (6)
  - Incorrect drug administration duration [None]
  - Drug dispensing error [None]
  - Muscle injury [None]
  - Arthralgia [None]
  - Vaginal haemorrhage [None]
  - Asthenia [None]

NARRATIVE: CASE EVENT DATE: 20121215
